FAERS Safety Report 12822999 (Version 4)
Quarter: 2016Q4

REPORT INFORMATION
  Report Type: Spontaneous
  Country: US (occurrence: US)
  Receive Date: 20161006
  Receipt Date: 20161122
  Transmission Date: 20170207
  Serious: Yes (Life-Threatening, Hospitalization, Other)
  Sender: FDA-Public Use
  Company Number: US-BAYER-2016-193116

PATIENT
  Age: 64 Year
  Sex: Male
  Weight: 63 kg

DRUGS (12)
  1. CELECOXIB. [Concomitant]
     Active Substance: CELECOXIB
  2. CHLORHEXIDINE GLUCONATE. [Concomitant]
     Active Substance: CHLORHEXIDINE GLUCONATE
  3. LEVETIRACETAM. [Concomitant]
     Active Substance: LEVETIRACETAM
  4. ATORVASTATIN [Concomitant]
     Active Substance: ATORVASTATIN
  5. VITAMIN D [Concomitant]
     Active Substance: CHOLECALCIFEROL
  6. DOCUSATE [Concomitant]
     Active Substance: DOCUSATE
  7. PREDNISONE. [Concomitant]
     Active Substance: PREDNISONE
  8. CLINDAMYCIN PHOSPHATE. [Concomitant]
     Active Substance: CLINDAMYCIN PHOSPHATE
  9. GADAVIST [Suspect]
     Active Substance: GADOBUTROL
     Indication: NON-SMALL CELL LUNG CANCER
  10. OMEPRAZOLE. [Concomitant]
     Active Substance: OMEPRAZOLE
  11. GADAVIST [Suspect]
     Active Substance: GADOBUTROL
     Indication: NUCLEAR MAGNETIC RESONANCE IMAGING BRAIN
     Dosage: 5 ML, ONCE
     Route: 042
     Dates: start: 20161001, end: 20161001
  12. DEXAMETHASONE. [Concomitant]
     Active Substance: DEXAMETHASONE

REACTIONS (10)
  - Unresponsive to stimuli [Recovered/Resolved]
  - Throat irritation [Recovered/Resolved]
  - Cardiac arrest [None]
  - Anaphylactic reaction [Recovered/Resolved]
  - Loss of consciousness [Recovered/Resolved]
  - Speech disorder [None]
  - Hyperhidrosis [Recovered/Resolved]
  - Troponin increased [Recovered/Resolved]
  - Discomfort [Recovered/Resolved]
  - Dysphagia [Recovered/Resolved]

NARRATIVE: CASE EVENT DATE: 201610
